FAERS Safety Report 18517790 (Version 4)
Quarter: 2021Q3

REPORT INFORMATION
  Report Type: Report from Study
  Country: None (occurrence: CA)
  Receive Date: 20201118
  Receipt Date: 20210712
  Transmission Date: 20211014
  Serious: Yes (Other)
  Sender: FDA-Public Use
  Company Number: CA-ABBVIE-20K-028-3651199-00

PATIENT
  Age: 79 Year
  Sex: Female

DRUGS (2)
  1. RINVOQ [Suspect]
     Active Substance: UPADACITINIB
     Indication: RHEUMATOID ARTHRITIS
     Route: 048
     Dates: start: 20201028
  2. RINVOQ [Suspect]
     Active Substance: UPADACITINIB
     Route: 048

REACTIONS (16)
  - Pain in extremity [Unknown]
  - Spinal operation [Unknown]
  - Joint range of motion decreased [Unknown]
  - Unevaluable event [Unknown]
  - Arthralgia [Unknown]
  - Gait disturbance [Unknown]
  - Back pain [Unknown]
  - Arthralgia [Unknown]
  - Pain [Unknown]
  - Hypoaesthesia [Unknown]
  - Back pain [Unknown]
  - Hypoaesthesia [Recovered/Resolved]
  - Pain in extremity [Recovered/Resolved]
  - Pain in extremity [Unknown]
  - Temperature intolerance [Unknown]
  - Joint range of motion decreased [Unknown]

NARRATIVE: CASE EVENT DATE: 202012
